FAERS Safety Report 7206809-3 (Version None)
Quarter: 2010Q4

REPORT INFORMATION
  Report Type: 
  Country: None (occurrence: None)
  Receive Date: 20101217
  Receipt Date: 20101201
  Transmission Date: 20110411
  Serious: Yes (Hospitalization, Other)
  Sender: FDA-Public Use
  Company Number: 1000017695

PATIENT
  Age: 27 Year
  Sex: Male

DRUGS (1)
  1. CITALOPRAM (CITALOPRAM HYDROBROMIDE) (20 MILLIGRAM, TABLETS) [Suspect]
     Indication: DEPRESSIVE SYMPTOM
     Dosage: 20 MG (20 MG, 1 IN 1 D), ORAL
     Route: 048

REACTIONS (10)
  - AGITATION [None]
  - CONDITION AGGRAVATED [None]
  - DELUSION [None]
  - DISTURBANCE IN ATTENTION [None]
  - HALLUCINATION [None]
  - HYPOAESTHESIA [None]
  - IRRITABILITY [None]
  - NASOPHARYNGITIS [None]
  - PARAESTHESIA [None]
  - SUSPICIOUSNESS [None]
